FAERS Safety Report 21336444 (Version 1)
Quarter: 2022Q3

REPORT INFORMATION
  Report Type: Spontaneous
  Country: US (occurrence: US)
  Receive Date: 20220915
  Receipt Date: 20220915
  Transmission Date: 20221026
  Serious: Yes (Life-Threatening, Hospitalization, Other)
  Sender: FDA-Public Use
  Company Number: US-MLMSERVICE-2022083037676211

PATIENT

DRUGS (2)
  1. MYCOPHENOLATE MOFETIL [Suspect]
     Active Substance: MYCOPHENOLATE MOFETIL
     Indication: Immunosuppressant drug therapy
  2. CYCLOSPORINE [Suspect]
     Active Substance: CYCLOSPORINE
     Indication: Immunosuppressant drug therapy

REACTIONS (6)
  - Post transplant lymphoproliferative disorder [Recovered/Resolved]
  - Immunosuppressant drug level increased [Recovered/Resolved]
  - Cytomegalovirus viraemia [Recovered/Resolved]
  - Diffuse large B-cell lymphoma [Recovered/Resolved]
  - Central nervous system lymphoma [Recovered/Resolved]
  - Hemiparesis [Recovered/Resolved]
